FAERS Safety Report 6725190-7 (Version None)
Quarter: 2010Q2

REPORT INFORMATION
  Report Type: 
  Country: None (occurrence: None)
  Receive Date: 20100514
  Receipt Date: 20100502
  Transmission Date: 20101027
  Serious: Yes (Hospitalization)
  Sender: FDA-Public Use
  Company Number: PHHY2010DE29556

PATIENT
  Sex: Female
  Weight: 90 kg

DRUGS (10)
  1. ALISKIREN ALI+ [Suspect]
     Indication: HYPERTENSION
     Dosage: UNK
     Route: 048
     Dates: start: 20090304
  2. ACE INHIBITOR NOS [Concomitant]
  3. BETA BLOCKING AGENTS [Concomitant]
  4. CALCIUM CHANNEL BLOCKERS [Concomitant]
  5. DIURETICS [Concomitant]
     Dosage: UNK
  6. ALPHA-ADRENOCEPTOR BLOCKING AGENTS [Concomitant]
  7. NITRATES [Concomitant]
  8. ANTIDEPRESSANTS [Concomitant]
  9. PLATELET AGGREGATION INHIBITORS [Concomitant]
  10. CHOLESTEROL- AND TRIGLYCERIDE REDUCERS [Concomitant]

REACTIONS (5)
  - BLOOD CHOLESTEROL INCREASED [None]
  - BLOOD TRIGLYCERIDES INCREASED [None]
  - CEREBROVASCULAR ACCIDENT [None]
  - HYPERTENSION [None]
  - REHABILITATION THERAPY [None]
